FAERS Safety Report 7305549-X (Version None)
Quarter: 2011Q1

REPORT INFORMATION
  Report Type: 
  Country: None (occurrence: None)
  Receive Date: 20110210
  Receipt Date: 20110202
  Transmission Date: 20110831
  Serious: Yes (Death)
  Sender: FDA-Public Use
  Company Number: TRP_07544_2011

PATIENT
  Age: 7 Year
  Sex: Male

DRUGS (3)
  1. SODIUM STIBOGLUCONATE (SODIUM STIBOGLUCONATE) [Suspect]
     Indication: VISCERAL LEISHMANIASIS
     Dosage: (20 MG/KG QD INTRAMUSCULAR)
     Route: 030
  2. AMPHOTERICIN B [Suspect]
     Indication: VISCERAL LEISHMANIASIS
     Dosage: SEE IMAGE
     Route: 042
  3. AMPHOTERICIN B [Suspect]
     Indication: VISCERAL LEISHMANIASIS
     Dosage: SEE IMAGE
     Route: 042

REACTIONS (3)
  - SHOCK [None]
  - VENTRICULAR TACHYCARDIA [None]
  - CARDIOTOXICITY [None]
